FAERS Safety Report 8184919-4 (Version None)
Quarter: 2012Q1

REPORT INFORMATION
  Report Type: 
  Country: None (occurrence: None)
  Receive Date: 20120305
  Receipt Date: 20120228
  Transmission Date: 20120608
  Serious: Yes (Other)
  Sender: FDA-Public Use
  Company Number: US-GLAXOSMITHKLINE-A0964017A

PATIENT
  Age: 44 Year
  Sex: Female

DRUGS (5)
  1. SINGULAIR [Concomitant]
  2. CYMBALTA [Concomitant]
  3. ADVAIR DISKUS 100/50 [Suspect]
     Indication: ASTHMA
     Dosage: 1PUFF TWICE PER DAY
     Route: 055
     Dates: start: 20060101
  4. ACIPHEX [Concomitant]
  5. MECLIZINE [Concomitant]

REACTIONS (4)
  - DYSPNOEA [None]
  - COUGH [None]
  - PRODUCT QUALITY ISSUE [None]
  - ASTHMA [None]
